FAERS Safety Report 14685831 (Version 1)
Quarter: 2018Q1

REPORT INFORMATION
  Report Type: Spontaneous
  Country: US (occurrence: US)
  Receive Date: 20180327
  Receipt Date: 20180327
  Transmission Date: 20180509
  Serious: No
  Sender: FDA-Public Use
  Company Number: US-DRREDDYS-USA/USA/17/0087865

PATIENT
  Sex: Male
  Weight: 80.9 kg

DRUGS (2)
  1. DIVALPROEX SODIUM DR [Suspect]
     Active Substance: DIVALPROEX SODIUM
     Indication: SEIZURE
     Route: 048
     Dates: start: 201701
  2. LAMICTAL ODT [Concomitant]
     Active Substance: LAMOTRIGINE
     Indication: PRODUCT USED FOR UNKNOWN INDICATION
     Route: 065

REACTIONS (2)
  - Product packaging issue [Unknown]
  - No adverse event [Unknown]
